FAERS Safety Report 8020024-5 (Version None)
Quarter: 2012Q1

REPORT INFORMATION
  Report Type: 
  Country: None (occurrence: None)
  Receive Date: 20120103
  Receipt Date: 20111226
  Transmission Date: 20120608
  Serious: Yes (Hospitalization, Other)
  Sender: FDA-Public Use
  Company Number: PHHY2011FR103530

PATIENT
  Sex: Male

DRUGS (1)
  1. AFINITOR [Suspect]
     Indication: RENAL CELL CARCINOMA
     Dosage: 10 MG,
     Route: 048
     Dates: start: 20100810, end: 20111116

REACTIONS (4)
  - ANAEMIA [None]
  - INFLAMMATION [None]
  - SERUM FERRITIN INCREASED [None]
  - C-REACTIVE PROTEIN INCREASED [None]
